FAERS Safety Report 5309563-5 (Version None)
Quarter: 2007Q2

REPORT INFORMATION
  Report Type: 
  Country: None (occurrence: None)
  Receive Date: 20070427
  Receipt Date: 20070425
  Transmission Date: 20071010
  Serious: Yes (Death, Other)
  Sender: FDA-Public Use
  Company Number: US-BAYER-200710426BWH

PATIENT
  Age: 58 Year
  Sex: Female

DRUGS (6)
  1. TRASYLOL [Suspect]
     Indication: CORONARY ARTERY BYPASS
     Dosage: UNIT DOSE: 10000 KIU
     Route: 042
     Dates: start: 20070206
  2. PROTAMINE SULFATE [Suspect]
     Indication: CORONARY ARTERY BYPASS
  3. PLAVIX [Concomitant]
  4. HEPARIN [Concomitant]
  5. ACE INHIBITORS [Concomitant]
  6. NOREPINEPHRINE BITARTRATE [Concomitant]

REACTIONS (5)
  - AORTIC THROMBOSIS [None]
  - ELECTROCARDIOGRAM ST SEGMENT ELEVATION [None]
  - GRAFT THROMBOSIS [None]
  - HYPOTENSION [None]
  - INTRACARDIAC THROMBUS [None]
